FAERS Safety Report 7492216-5 (Version None)
Quarter: 2011Q2

REPORT INFORMATION
  Report Type: 
  Country: None (occurrence: None)
  Receive Date: 20110519
  Receipt Date: 20101115
  Transmission Date: 20111010
  Serious: No
  Sender: FDA-Public Use
  Company Number: US-NOVEN-ALL1-2010-05394

PATIENT
  Sex: Male
  Weight: 21.315 kg

DRUGS (5)
  1. DAYTRANA [Suspect]
     Dosage: 20 MG, 1X/DAY:QD
     Route: 062
     Dates: start: 20100401, end: 20100601
  2. DAYTRANA [Suspect]
     Dosage: 20 MG, 1X/DAY:QD
     Route: 062
     Dates: start: 20101019
  3. DAYTRANA [Suspect]
     Dosage: UNK MG, UNKNOWN
     Route: 062
     Dates: start: 20101014, end: 20101018
  4. DAYTRANA [Suspect]
     Dosage: 10 MG, 1X/DAY:QD
     Route: 062
     Dates: start: 20091201, end: 20100101
  5. DAYTRANA [Suspect]
     Dosage: 15 MG, 1X/DAY:QD
     Route: 062
     Dates: start: 20100201, end: 20100301

REACTIONS (4)
  - INITIAL INSOMNIA [None]
  - GROWTH RETARDATION [None]
  - TIC [None]
  - APPLICATION SITE RASH [None]
